FAERS Safety Report 16846407 (Version 2)
Quarter: 2019Q4

REPORT INFORMATION
  Report Type: Spontaneous
  Country: US (occurrence: US)
  Receive Date: 20190924
  Receipt Date: 20191003
  Transmission Date: 20200122
  Serious: No
  Sender: FDA-Public Use
  Company Number: US-TEVA-2019-US-1111798

PATIENT
  Age: 10 Year
  Sex: Female

DRUGS (1)
  1. METHYLPHENIDATE ER ACTAVIS [Suspect]
     Active Substance: METHYLPHENIDATE
     Indication: ATTENTION DEFICIT/HYPERACTIVITY DISORDER
     Dosage: 18 MILLIGRAM DAILY;
     Route: 048
     Dates: start: 20190818

REACTIONS (2)
  - Headache [Unknown]
  - Eyelash injury [Unknown]
